FAERS Safety Report 7280840-4 (Version None)
Quarter: 2011Q1

REPORT INFORMATION
  Report Type: 
  Country: None (occurrence: None)
  Receive Date: 20110208
  Receipt Date: 20110201
  Transmission Date: 20110831
  Serious: Yes (Disabling)
  Sender: FDA-Public Use
  Company Number: JP-SANOFI-AVENTIS-2011SA006776

PATIENT
  Age: 84 Year
  Sex: Male
  Weight: 69.4 kg

DRUGS (7)
  1. ASPIRIN [Concomitant]
     Route: 048
     Dates: start: 20090917
  2. AMLODIPINE [Concomitant]
     Indication: HYPERTENSION
     Route: 048
  3. HEPARIN SODIUM [Concomitant]
     Route: 042
     Dates: start: 20090922, end: 20090922
  4. LIPITOR [Concomitant]
     Indication: HYPERLIPIDAEMIA
     Route: 048
     Dates: start: 20100215
  5. PLAVIX [Suspect]
     Route: 048
     Dates: start: 20090917
  6. TANATRIL ^TANABE^ [Concomitant]
     Indication: HYPERTENSION
     Route: 048
  7. CARDENALIN [Concomitant]
     Indication: HYPERTENSION
     Route: 048

REACTIONS (1)
  - CARDIAC FAILURE [None]
